FAERS Safety Report 9098940 (Version 2)
Quarter: 2013Q3

REPORT INFORMATION
  Report Type: Report from Study
  Country: US (occurrence: US)
  Receive Date: 20130214
  Receipt Date: 20130814
  Transmission Date: 20140515
  Serious: Yes (Hospitalization)
  Sender: FDA-Public Use
  Company Number: US-ELI_LILLY_AND_COMPANY-US201302001502

PATIENT
  Sex: Female

DRUGS (3)
  1. TERIPARATIDE [Suspect]
     Indication: OSTEOPOROSIS
     Dosage: 20 UG, QD
     Dates: start: 201210
  2. TERIPARATIDE [Suspect]
     Indication: FALL
     Dosage: 20 UG, QD
     Dates: end: 201305
  3. TERIPARATIDE [Suspect]
     Indication: GAIT DISTURBANCE

REACTIONS (4)
  - Influenza like illness [Unknown]
  - Nephrolithiasis [Not Recovered/Not Resolved]
  - Rash generalised [Recovered/Resolved]
  - Pruritus generalised [Recovered/Resolved]
